FAERS Safety Report 25889884 (Version 1)
Quarter: 2025Q4

REPORT INFORMATION
  Report Type: Spontaneous
  Country: ZA (occurrence: ZA)
  Receive Date: 20251007
  Receipt Date: 20251007
  Transmission Date: 20260117
  Serious: Yes (Hospitalization, Other)
  Sender: CIPLA
  Company Number: ZA-CIPLA LTD.-2025ZA10747

PATIENT

DRUGS (3)
  1. LENALIDOMIDE [Suspect]
     Active Substance: LENALIDOMIDE
     Indication: Plasma cell myeloma
     Dosage: 10 MILLIGRAM QD(STRENGTH: 10 MG)
     Route: 048
     Dates: start: 20250311, end: 20250408
  2. LENALIDOMIDE [Suspect]
     Active Substance: LENALIDOMIDE
     Indication: Autologous haematopoietic stem cell transplant
     Dosage: 25 MILLIGRAM, QD (STRENGTH: 25 MG)
     Route: 048
     Dates: start: 20250812
  3. LENALIDOMIDE [Suspect]
     Active Substance: LENALIDOMIDE
     Dosage: 10 MILLIGRAM QD(STRENGTH: 10 MG)
     Route: 048
     Dates: start: 20250909

REACTIONS (4)
  - Myelosuppression [Recovered/Resolved]
  - Cytopenia [Unknown]
  - Diarrhoea [Recovered/Resolved]
  - Cough [Recovered/Resolved]

NARRATIVE: CASE EVENT DATE: 20250408
